FAERS Safety Report 12436283 (Version 2)
Quarter: 2016Q3

REPORT INFORMATION
  Report Type: Spontaneous
  Country: US (occurrence: US)
  Receive Date: 20160605
  Receipt Date: 20160926
  Transmission Date: 20161109
  Serious: No
  Sender: FDA-Public Use
  Company Number: US-ASTRAZENECA-2016SE53206

PATIENT
  Age: 28655 Day
  Sex: Female

DRUGS (1)
  1. TAGRISSO [Suspect]
     Active Substance: OSIMERTINIB
     Indication: MALIGNANT NEOPLASM OF UNKNOWN PRIMARY SITE
     Route: 048
     Dates: start: 20150803

REACTIONS (4)
  - Blood chloride decreased [Unknown]
  - Blood sodium decreased [Unknown]
  - Platelet count decreased [Unknown]
  - Pneumonia [Unknown]

NARRATIVE: CASE EVENT DATE: 20160507
